FAERS Safety Report 6849694-1 (Version None)
Quarter: 2010Q3

REPORT INFORMATION
  Report Type: 
  Country: None (occurrence: None)
  Receive Date: 20100716
  Receipt Date: 20080130
  Transmission Date: 20110219
  Serious: No
  Sender: FDA-Public Use
  Company Number: US-PFIZER INC-2007083297

PATIENT
  Sex: Female
  Weight: 40.9 kg

DRUGS (8)
  1. CHANTIX [Suspect]
     Indication: SMOKING CESSATION THERAPY
     Route: 048
     Dates: start: 20070801, end: 20070928
  2. EVISTA [Concomitant]
  3. LIPITOR [Concomitant]
  4. GLIPIZIDE [Concomitant]
  5. LISINOPRIL [Concomitant]
     Indication: TYPE 2 DIABETES MELLITUS
  6. ALLEGRA D 24 HOUR [Concomitant]
  7. ALLEGRA [Concomitant]
  8. DICYCLOMINE [Concomitant]

REACTIONS (4)
  - DRUG DOSE OMISSION [None]
  - DRUG INTOLERANCE [None]
  - FLATULENCE [None]
  - NAUSEA [None]
